FAERS Safety Report 12951125 (Version 1)
Quarter: 2016Q4

REPORT INFORMATION
  Report Type: Spontaneous
  Country: ZA (occurrence: ZA)
  Receive Date: 20161117
  Receipt Date: 20161117
  Transmission Date: 20170207
  Serious: Yes (Hospitalization)
  Sender: FDA-Public Use
  Company Number: ZA-PFIZER INC-2016534157

PATIENT
  Age: 61 Year
  Sex: Male

DRUGS (3)
  1. ALDACTONE [Suspect]
     Active Substance: SPIRONOLACTONE
     Indication: DIURETIC THERAPY
     Dosage: 25 MG, 2X/DAY
     Route: 048
     Dates: start: 20160909
  2. CARLOC [Concomitant]
     Active Substance: CARVEDILOL
     Indication: CARDIOVASCULAR DISORDER
     Dosage: 3.125 MG, 2X/DAY
     Route: 048
     Dates: start: 20160909
  3. CHELA IRON [Concomitant]
     Indication: BLOOD IRON DECREASED
     Dosage: 2 DF, DAILY
     Route: 048
     Dates: start: 20160909

REACTIONS (1)
  - Pleural effusion [Unknown]
